FAERS Safety Report 4474243-5 (Version None)
Quarter: 2004Q4

REPORT INFORMATION
  Report Type: 
  Country: None (occurrence: None)
  Receive Date: 20041008
  Receipt Date: 20040921
  Transmission Date: 20050328
  Serious: Yes (Hospitalization, Other)
  Sender: FDA-Public Use
  Company Number: US_0409106080

PATIENT
  Age: 69 Year
  Sex: Female
  Weight: 114 kg

DRUGS (2)
  1. HUMALOG-HUMAN INSULIN (RDNA): 25% LISPRO, 75% NPL (LI [Suspect]
     Dosage: 45 U DAY
  2. ACTOS [Concomitant]

REACTIONS (12)
  - ABDOMINAL DISTENSION [None]
  - ARTHRITIS [None]
  - BLOOD GLUCOSE DECREASED [None]
  - BURNING SENSATION [None]
  - CONTUSION [None]
  - KIDNEY INFECTION [None]
  - LIPID METABOLISM DISORDER [None]
  - MEMORY IMPAIRMENT [None]
  - PAIN IN EXTREMITY [None]
  - PHARMACEUTICAL PRODUCT COMPLAINT [None]
  - SEPSIS [None]
  - WEIGHT INCREASED [None]
